FAERS Safety Report 7334624-9 (Version None)
Quarter: 2011Q1

REPORT INFORMATION
  Report Type: 
  Country: None (occurrence: None)
  Receive Date: 20110224
  Receipt Date: 20110210
  Transmission Date: 20110831
  Serious: Yes (Disabling)
  Sender: FDA-Public Use
  Company Number: 027229

PATIENT
  Age: 16 Year
  Sex: Male

DRUGS (2)
  1. BENZODIAZEPINE DERIVATIVES [Concomitant]
  2. KEPPRA [Suspect]
     Indication: TEMPORAL LOBE EPILEPSY
     Dosage: (1500 MG)

REACTIONS (2)
  - BRAIN NEOPLASM [None]
  - PSYCHOTIC DISORDER [None]
